FAERS Safety Report 5750846-2 (Version None)
Quarter: 2008Q2

REPORT INFORMATION
  Report Type: 
  Country: None (occurrence: None)
  Receive Date: 20080528
  Receipt Date: 20080519
  Transmission Date: 20081010
  Serious: Yes (Hospitalization)
  Sender: FDA-Public Use
  Company Number: B0521113A

PATIENT
  Age: 70 Year
  Sex: Female

DRUGS (13)
  1. PAROXETINE HCL [Suspect]
     Indication: DRUG USE FOR UNKNOWN INDICATION
     Route: 048
  2. ZOPHREN [Suspect]
     Indication: DRUG USE FOR UNKNOWN INDICATION
     Route: 048
     Dates: start: 20070901, end: 20080104
  3. METHOTREXATE [Suspect]
     Dosage: 3100MG CYCLIC
     Route: 042
     Dates: start: 20070901, end: 20080104
  4. METHOTREXATE [Suspect]
     Route: 037
     Dates: start: 20070901, end: 20080104
  5. ETOPOSIDE [Suspect]
     Dosage: 150MG MONTHLY
     Route: 042
     Dates: start: 20070901, end: 20080104
  6. BICNU [Suspect]
     Dosage: 150MG MONTHLY
     Route: 042
     Dates: start: 20070901, end: 20080104
  7. SOLU-MEDROL [Suspect]
     Dosage: 60MGM2 CYCLIC
     Route: 042
     Dates: start: 20070901, end: 20080104
  8. DEPO-MEDROL [Suspect]
     Route: 037
     Dates: start: 20070901, end: 20080104
  9. ARACYTINE [Suspect]
     Route: 037
     Dates: start: 20070901, end: 20080104
  10. MOPRAL [Suspect]
     Indication: DRUG USE FOR UNKNOWN INDICATION
     Route: 065
  11. BACTRIM [Suspect]
     Indication: DRUG USE FOR UNKNOWN INDICATION
     Route: 048
     Dates: start: 20070901
  12. FOLIC ACID [Concomitant]
     Indication: DRUG USE FOR UNKNOWN INDICATION
     Route: 065
  13. PRIMPERAN TAB [Concomitant]
     Indication: DRUG USE FOR UNKNOWN INDICATION
     Route: 065

REACTIONS (6)
  - ASPIRATION [None]
  - CRANIAL NERVE PARALYSIS [None]
  - DIPLOPIA [None]
  - DYSPHAGIA [None]
  - EYELID PTOSIS [None]
  - STRABISMUS [None]
